FAERS Safety Report 10340868 (Version 3)
Quarter: 2014Q4

REPORT INFORMATION
  Report Type: Spontaneous
  Country: JP (occurrence: JP)
  Receive Date: 20140724
  Receipt Date: 20141126
  Transmission Date: 20150528
  Serious: Yes (Death)
  Sender: FDA-Public Use
  Company Number: JP-TEVA-495896ISR

PATIENT
  Sex: Male
  Weight: 55 kg

DRUGS (12)
  1. FENTANYL. [Concomitant]
     Active Substance: FENTANYL
     Indication: CANCER PAIN
     Dosage: 4.2 MG
     Route: 062
     Dates: start: 20140703, end: 20140703
  2. FENTANYL. [Concomitant]
     Active Substance: FENTANYL
     Dosage: 8.4 MG
     Route: 062
     Dates: start: 20140704, end: 20140704
  3. MOBIC [Concomitant]
     Active Substance: MELOXICAM
     Indication: CANCER PAIN
     Dosage: 10 MG
     Route: 048
     Dates: start: 20140702, end: 20140710
  4. FENTANYL. [Concomitant]
     Active Substance: FENTANYL
     Dosage: 16.8 MG
     Route: 062
     Dates: start: 20140708, end: 20140712
  5. OXINORM [Concomitant]
     Active Substance: OXYCODONE HYDROCHLORIDE
     Indication: BREAKTHROUGH PAIN
     Dosage: 5.0 MG
     Route: 048
     Dates: start: 20140702, end: 20140703
  6. LAXOBERON [Concomitant]
     Active Substance: SODIUM PICOSULFATE
     Indication: CONSTIPATION
     Dosage: 5 MG
     Route: 048
     Dates: start: 20140702, end: 20140710
  7. E-FEN BUCCAL [Suspect]
     Active Substance: FENTANYL CITRATE
     Dosage: DAILY DOSE: 200 MICROGRAM- 800 MICROGRAM
     Route: 002
     Dates: start: 20140705, end: 20140711
  8. OXYCONTIN [Concomitant]
     Active Substance: OXYCODONE HYDROCHLORIDE
     Indication: CANCER PAIN
     Dosage: 30 MG
     Route: 048
     Dates: start: 20140702, end: 20140703
  9. RINDERON V [Concomitant]
     Active Substance: BETAMETHASONE VALERATE
     Indication: DECREASED APPETITE
     Dosage: 2 MG
     Route: 048
     Dates: start: 20140702, end: 20140710
  10. TAKEPRON [Concomitant]
     Active Substance: LANSOPRAZOLE
     Indication: PROPHYLAXIS AGAINST GASTROINTESTINAL ULCER
     Dosage: 15 MG
     Route: 048
     Dates: start: 20140703, end: 20140710
  11. E-FEN BUCCAL [Suspect]
     Active Substance: FENTANYL CITRATE
     Indication: BREAKTHROUGH PAIN
     Dosage: DAILY DOSE: 100 MICROGRAM- 300 MICROGRAM
     Route: 002
     Dates: start: 20140703, end: 20140704
  12. FENTANYL. [Concomitant]
     Active Substance: FENTANYL
     Dosage: 12.6 MG
     Route: 062
     Dates: start: 20140705, end: 20140707

REACTIONS (1)
  - Pancreatic carcinoma [Fatal]
